FAERS Safety Report 7609034-7 (Version None)
Quarter: 2011Q3

REPORT INFORMATION
  Report Type: 
  Country: None (occurrence: None)
  Receive Date: 20110714
  Receipt Date: 20110706
  Transmission Date: 20111222
  Serious: Yes (Hospitalization)
  Sender: FDA-Public Use
  Company Number: PL-ROCHE-788318

PATIENT
  Age: 52 Year
  Sex: Female

DRUGS (2)
  1. HERCEPTIN [Suspect]
     Route: 065
     Dates: start: 20090401, end: 20101201
  2. TAXOL [Suspect]
     Route: 065
     Dates: start: 20090401, end: 20090901

REACTIONS (6)
  - NAUSEA [None]
  - VOMITING [None]
  - NERVOUS SYSTEM DISORDER [None]
  - ANAEMIA [None]
  - VERTIGO [None]
  - LEUKOPENIA [None]
